FAERS Safety Report 18869779 (Version 1)
Quarter: 2021Q1

REPORT INFORMATION
  Report Type: Spontaneous
  Country: JP (occurrence: JP)
  Receive Date: 20210209
  Receipt Date: 20210209
  Transmission Date: 20210420
  Serious: Yes (Other)
  Sender: FDA-Public Use
  Company Number: JP-GILEAD-2019-0414056

PATIENT
  Age: 74 Year
  Sex: Male

DRUGS (6)
  1. HEPSERA [Suspect]
     Active Substance: ADEFOVIR DIPIVOXIL
     Dosage: 10 MG, QD
     Route: 048
     Dates: start: 201304
  2. ZEFIX [Suspect]
     Active Substance: LAMIVUDINE
     Indication: HEPATITIS B
     Dosage: 100 MG, QD
     Route: 048
     Dates: start: 2012, end: 20181213
  3. ZEFIX [Suspect]
     Active Substance: LAMIVUDINE
     Dosage: 100 MG, QD
     Route: 048
     Dates: start: 2002
  4. AMLODIPINE BESILATE;IRBESARTAN [Concomitant]
     Indication: HYPERTENSION
     Dosage: 1 DF, QD
     Route: 048
  5. HEPSERA [Suspect]
     Active Substance: ADEFOVIR DIPIVOXIL
     Indication: HEPATITIS B
     Dosage: 10 MG, QD
     Route: 048
     Dates: start: 2012, end: 20181213
  6. LOXOAFEN [Concomitant]
     Dosage: UNK

REACTIONS (14)
  - Blood phosphorus decreased [Recovering/Resolving]
  - Myalgia [Unknown]
  - Insomnia [Recovered/Resolved]
  - Coccydynia [Unknown]
  - Bone pain [Unknown]
  - Hepatitis B reactivation [Unknown]
  - Fanconi syndrome acquired [Unknown]
  - Blood alkaline phosphatase increased [Recovering/Resolving]
  - Pain [Unknown]
  - Hypoaesthesia [Unknown]
  - Hepatocellular carcinoma [Unknown]
  - Calcinosis [Unknown]
  - Pain in extremity [Unknown]
  - Pelvic pain [Unknown]

NARRATIVE: CASE EVENT DATE: 2012
